FAERS Safety Report 20176774 (Version 5)
Quarter: 2022Q4

REPORT INFORMATION
  Report Type: Report from Study
  Country: US (occurrence: US)
  Receive Date: 20211213
  Receipt Date: 20221013
  Transmission Date: 20230113
  Serious: Yes (Other)
  Sender: FDA-Public Use
  Company Number: US-NOVARTISPH-NVSC2021US281221

PATIENT
  Sex: Female

DRUGS (1)
  1. KESIMPTA [Suspect]
     Active Substance: OFATUMUMAB
     Indication: Product used for unknown indication
     Dosage: UNK, QMO
     Route: 065
     Dates: start: 20210624, end: 20220325

REACTIONS (3)
  - Immunodeficiency [Not Recovered/Not Resolved]
  - Cervix carcinoma stage I [Not Recovered/Not Resolved]
  - Vision blurred [Unknown]
